FAERS Safety Report 21168588 (Version 1)
Quarter: 2022Q3

REPORT INFORMATION
  Report Type: Spontaneous
  Country: US (occurrence: US)
  Receive Date: 20220803
  Receipt Date: 20220803
  Transmission Date: 20221027
  Serious: Yes (Hospitalization)
  Sender: FDA-Public Use
  Company Number: US-ALLERGAN-2224791US

PATIENT

DRUGS (2)
  1. DALVANCE [Suspect]
     Active Substance: DALBAVANCIN
     Indication: Animal bite
     Dosage: UNK
  2. DALVANCE [Suspect]
     Active Substance: DALBAVANCIN
     Indication: Infection

REACTIONS (1)
  - Purulent discharge [Unknown]
